FAERS Safety Report 7068806-0 (Version None)
Quarter: 2010Q4

REPORT INFORMATION
  Report Type: 
  Country: None (occurrence: None)
  Receive Date: 20101028
  Receipt Date: 20101026
  Transmission Date: 20110411
  Serious: Yes (Death)
  Sender: FDA-Public Use
  Company Number: FR-MERCK-1009FRA00109B1

PATIENT

DRUGS (3)
  1. RALTEGRAVIR POTASSIUM [Suspect]
     Route: 064
  2. LOPINAVIR AND RITONAVIR [Suspect]
     Route: 064
  3. EMTRICITABINE AND TENOFOVIR DISOPROXIL FUMARATE [Suspect]
     Route: 064

REACTIONS (1)
  - FOETAL DISORDER [None]
